FAERS Safety Report 9459698 (Version 1)
Quarter: 2013Q3

REPORT INFORMATION
  Report Type: Spontaneous
  Country: IT (occurrence: IT)
  Receive Date: 20130815
  Receipt Date: 20130815
  Transmission Date: 20140515
  Serious: Yes (Other)
  Sender: FDA-Public Use
  Company Number: IT-TEVA-423456ISR

PATIENT
  Age: 86 Year
  Sex: Male

DRUGS (9)
  1. AMLODIPINE [Suspect]
     Indication: HYPERTENSION
     Dosage: 5 MILLIGRAM DAILY;
     Route: 048
     Dates: start: 20100101, end: 20130615
  2. ALDACTONE 25 MG [Concomitant]
  3. LANSOX 30 MG [Concomitant]
  4. CORTONE ACETATO 25 MG [Concomitant]
  5. CLEXANE 4000IU [Concomitant]
  6. MOVICOL 13,8 G [Concomitant]
  7. MYLICON [Concomitant]
     Dosage: SOLUTION FOR ORAL DROPS
  8. ZOLPIDEM TARTRATO [Concomitant]
  9. CALCIO CARBONATO [Concomitant]
     Dosage: 500 MILLIGRAM DAILY;

REACTIONS (2)
  - Loss of consciousness [Recovering/Resolving]
  - Hypotension [Recovering/Resolving]
